FAERS Safety Report 8529559-X (Version None)
Quarter: 2012Q3

REPORT INFORMATION
  Report Type: 
  Country: None (occurrence: None)
  Receive Date: 20120723
  Receipt Date: 20120713
  Transmission Date: 20120928
  Serious: Yes (Other)
  Sender: FDA-Public Use
  Company Number: IT-JNJFOC-20120709342

PATIENT

DRUGS (5)
  1. RITUXIMAB [Suspect]
     Indication: DIFFUSE LARGE B-CELL LYMPHOMA
     Dosage: 375 MG/M2 ON DAY 1 IN R-CHOP
     Route: 042
  2. DOXORUBICIN HYDROCHLORIDE [Suspect]
     Indication: DIFFUSE LARGE B-CELL LYMPHOMA
     Dosage: 50 MG/M2 ON DAY 1 IN CHOP REGIMEN; ON DAY 2 IN R-CHOP REGIMEN
     Route: 042
  3. PREDNISONE [Suspect]
     Indication: DIFFUSE LARGE B-CELL LYMPHOMA
     Dosage: 100 MG/DAY ON DAYS 1-5 IN CHOP OR R-CHOP
     Route: 048
  4. CYCLOPHOSPHAMIDE [Suspect]
     Indication: DIFFUSE LARGE B-CELL LYMPHOMA
     Dosage: 750 MG/M2 ON DAY 1 IN CHOP REGIMEN; ON DAY 2 IN R-CHOP REGIMEN
     Route: 042
  5. VINCRISTINE [Suspect]
     Indication: DIFFUSE LARGE B-CELL LYMPHOMA
     Dosage: 1.4 MG/M2 UPTO A MAXIMUM OF 2 MG ON DAY 1 IN CHOP REGIMEN, DAY 2 IN R-CHOP REGIMEN
     Route: 042

REACTIONS (1)
  - SKIN TOXICITY [None]
